FAERS Safety Report 8023272-3 (Version None)
Quarter: 2012Q1

REPORT INFORMATION
  Report Type: 
  Country: None (occurrence: None)
  Receive Date: 20120104
  Receipt Date: 20111221
  Transmission Date: 20120608
  Serious: Yes (Hospitalization)
  Sender: FDA-Public Use
  Company Number: US-MYLANLABS-2011S1026240

PATIENT
  Age: 45 Year
  Sex: Male

DRUGS (2)
  1. METHYLPREDNISOLONE [Suspect]
     Indication: ASTHMA
     Route: 042
  2. ALBUTEROL SULFATE AUTOHALER [Suspect]
     Indication: ASTHMA
     Route: 055

REACTIONS (4)
  - DRUG HYPERSENSITIVITY [None]
  - HYPOXIA [None]
  - SINUS TACHYCARDIA [None]
  - RESPIRATORY FAILURE [None]
